FAERS Safety Report 9067683 (Version 1)
Quarter: 2013Q1

REPORT INFORMATION
  Report Type: Spontaneous
  Country: JP (occurrence: JP)
  Receive Date: 20130129
  Receipt Date: 20130129
  Transmission Date: 20140127
  Serious: Yes (Hospitalization)
  Sender: FDA-Public Use
  Company Number: JP-ELI_LILLY_AND_COMPANY-JP201202003643

PATIENT
  Sex: Female

DRUGS (3)
  1. FORTEO [Suspect]
     Dosage: UNK
     Route: 058
     Dates: start: 20111215, end: 20120203
  2. FORTEO [Suspect]
     Dosage: UNK
     Route: 058
     Dates: start: 20120401, end: 201212
  3. FORTEO [Suspect]
     Dosage: UNK
     Route: 058
     Dates: start: 201301

REACTIONS (2)
  - Spinal deformity [Unknown]
  - Medication error [Unknown]
